FAERS Safety Report 4557934-7 (Version None)
Quarter: 2005Q1

REPORT INFORMATION
  Report Type: 
  Country: None (occurrence: None)
  Receive Date: 20050121
  Receipt Date: 20040212
  Transmission Date: 20050727
  Serious: No
  Sender: FDA-Public Use
  Company Number: US-BRISTOL-MYERS SQUIBB COMPANY-12503785

PATIENT
  Age: 53 Year
  Sex: Male
  Weight: 69 kg

DRUGS (5)
  1. SERZONE [Suspect]
     Indication: STRESS
     Route: 048
     Dates: end: 20040203
  2. NORVASC [Concomitant]
  3. ZOCOR [Concomitant]
  4. VALTREX [Concomitant]
  5. LEXAPRO [Concomitant]

REACTIONS (4)
  - AGITATION [None]
  - DIZZINESS [None]
  - EMOTIONAL DISORDER [None]
  - FATIGUE [None]
